FAERS Safety Report 20870829 (Version 2)
Quarter: 2022Q2

REPORT INFORMATION
  Report Type: Spontaneous
  Country: PL (occurrence: PL)
  Receive Date: 20220525
  Receipt Date: 20220601
  Transmission Date: 20220721
  Serious: Yes (Other)
  Sender: FDA-Public Use
  Company Number: PL-NOVARTISPH-NVSC2022PL119443

PATIENT
  Age: 59 Year
  Sex: Male

DRUGS (10)
  1. CYCLOSPORINE [Suspect]
     Active Substance: CYCLOSPORINE
     Indication: Dermatitis atopic
     Dosage: UNK
     Route: 065
  2. PSORALEN [Suspect]
     Active Substance: PSORALEN
     Indication: Dermatitis atopic
     Dosage: UNK
     Route: 065
  3. AZATHIOPRINE [Suspect]
     Active Substance: AZATHIOPRINE
     Indication: Dermatitis atopic
     Dosage: UNK
     Route: 065
  4. FLUOCINOLONE [Suspect]
     Active Substance: FLUOCINOLONE
     Indication: Dermatitis atopic
     Dosage: UNK
     Route: 061
  5. FLUOCINOLONE [Suspect]
     Active Substance: FLUOCINOLONE
     Indication: Steroid therapy
  6. FLUMETHASONE [Suspect]
     Active Substance: FLUMETHASONE
     Indication: Dermatitis atopic
     Dosage: UNK
     Route: 061
  7. FLUMETHASONE [Suspect]
     Active Substance: FLUMETHASONE
     Indication: Steroid therapy
  8. PREDNISOLONE [Suspect]
     Active Substance: PREDNISOLONE
     Indication: Dermatitis atopic
     Dosage: UNK
     Route: 061
  9. PREDNISOLONE [Suspect]
     Active Substance: PREDNISOLONE
     Indication: Steroid therapy
  10. CLIOQUINOL [Suspect]
     Active Substance: CLIOQUINOL
     Indication: Product used for unknown indication
     Dosage: UNK
     Route: 061

REACTIONS (3)
  - Acute kidney injury [Recovered/Resolved]
  - Hypertension [Unknown]
  - Therapeutic response decreased [Unknown]
